FAERS Safety Report 12844141 (Version 1)
Quarter: 2016Q4

REPORT INFORMATION
  Report Type: Spontaneous
  Country: US (occurrence: US)
  Receive Date: 20161012
  Receipt Date: 20161012
  Transmission Date: 20170207
  Serious: Yes (Disabling)
  Sender: FDA-Public Use
  Company Number: None

PATIENT
  Age: 74 Year
  Sex: Female
  Weight: 66 kg

DRUGS (12)
  1. PHYTONADIONE. [Concomitant]
     Active Substance: PHYTONADIONE
  2. DEFEROXAMINE [Suspect]
     Active Substance: DEFEROXAMINE\DEFEROXAMINE MESYLATE
     Indication: IRON OVERLOAD
     Route: 041
     Dates: start: 20161003, end: 20161006
  3. HYDRALAZINE [Concomitant]
     Active Substance: HYDRALAZINE HYDROCHLORIDE
  4. THIAMINE. [Concomitant]
     Active Substance: THIAMINE
  5. ALBUTEROL. [Concomitant]
     Active Substance: ALBUTEROL
  6. SEVELAMER [Concomitant]
     Active Substance: SEVELAMER
  7. URSODIOL. [Concomitant]
     Active Substance: URSODIOL
  8. CRESEMBA [Suspect]
     Active Substance: ISAVUCONAZONIUM SULFATE
     Indication: FUNGAL INFECTION
     Route: 048
     Dates: start: 20161004, end: 20161008
  9. METOPROLOL. [Concomitant]
     Active Substance: METOPROLOL
  10. FOLIC ACID. [Concomitant]
     Active Substance: FOLIC ACID
  11. PANTOPRAZOLE [Concomitant]
     Active Substance: PANTOPRAZOLE SODIUM
  12. SERTRALINE [Concomitant]
     Active Substance: SERTRALINE HYDROCHLORIDE

REACTIONS (3)
  - Visual acuity reduced [None]
  - Blindness [None]
  - Vision blurred [None]

NARRATIVE: CASE EVENT DATE: 20161007
